FAERS Safety Report 23114815 (Version 1)
Quarter: 2023Q4

REPORT INFORMATION
  Report Type: Spontaneous
  Country: US (occurrence: None)
  Receive Date: 20231026
  Receipt Date: 20231026
  Transmission Date: 20240109
  Serious: Yes (Other)
  Sender: FDA-Public Use
  Company Number: None

PATIENT
  Age: 50 Year
  Sex: Male
  Weight: 76.05 kg

DRUGS (1)
  1. INGREZZA [Suspect]
     Active Substance: VALBENAZINE
     Indication: Tardive dyskinesia
     Dosage: FREQUENCY : DAILY;?
     Route: 048
     Dates: start: 20231012, end: 20231016

REACTIONS (6)
  - Suicidal ideation [None]
  - Self-injurious ideation [None]
  - Affective disorder [None]
  - Frustration tolerance decreased [None]
  - Feeling of despair [None]
  - Therapy cessation [None]

NARRATIVE: CASE EVENT DATE: 20231016
